FAERS Safety Report 5207361-4 (Version None)
Quarter: 2007Q1

REPORT INFORMATION
  Report Type: 
  Country: None (occurrence: None)
  Receive Date: 20070112
  Receipt Date: 20070103
  Transmission Date: 20070707
  Serious: Yes (Other)
  Sender: FDA-Public Use
  Company Number: NL-ROCHE-477131

PATIENT
  Age: 62 Year
  Sex: Male
  Weight: 89 kg

DRUGS (2)
  1. XELODA [Suspect]
     Route: 048
     Dates: start: 20060215
  2. ELOXATIN [Suspect]
     Dosage: FORM REPORTED AS INJ SOL CONC.
     Route: 042
     Dates: start: 20060115

REACTIONS (2)
  - OEDEMA PERIPHERAL [None]
  - POLYNEUROPATHY [None]
